FAERS Safety Report 5786202-0 (Version None)
Quarter: 2008Q2

REPORT INFORMATION
  Report Type: 
  Country: None (occurrence: None)
  Receive Date: 20080624
  Receipt Date: 20080502
  Transmission Date: 20081010
  Serious: Yes (Other)
  Sender: FDA-Public Use
  Company Number: B0526225A

PATIENT
  Age: 33 Year
  Sex: Female

DRUGS (1)
  1. PAROXETINE HCL [Suspect]
     Indication: SOCIAL PHOBIA
     Route: 048
     Dates: start: 20060501, end: 20070501

REACTIONS (4)
  - ASTHENIA [None]
  - DRUG DEPENDENCE [None]
  - PALPITATIONS [None]
  - SOCIAL PHOBIA [None]
